FAERS Safety Report 6272775-0 (Version None)
Quarter: 2009Q3

REPORT INFORMATION
  Report Type: 
  Country: None (occurrence: None)
  Receive Date: 20090716
  Receipt Date: 20090716
  Transmission Date: 20100115
  Serious: No
  Sender: FDA-Public Use
  Company Number: None

PATIENT
  Age: 74 Year
  Sex: Female
  Weight: 63.5036 kg

DRUGS (4)
  1. FEXOFENADINE [Suspect]
     Indication: APHONIA
     Dosage: 1 IN 24 HOURS
     Dates: start: 20090612
  2. FEXOFENADINE [Suspect]
     Indication: PYREXIA
     Dosage: 1 IN 24 HOURS
     Dates: start: 20090612
  3. FEXOFENADINE [Suspect]
     Indication: APHONIA
     Dosage: 1 IN 24 HOURS
     Dates: start: 20090613
  4. FEXOFENADINE [Suspect]
     Indication: PYREXIA
     Dosage: 1 IN 24 HOURS
     Dates: start: 20090613

REACTIONS (4)
  - BACK PAIN [None]
  - COUGH [None]
  - DIZZINESS [None]
  - DYSPNOEA [None]
